FAERS Safety Report 5109841-9 (Version None)
Quarter: 2006Q3

REPORT INFORMATION
  Report Type: 
  Country: None (occurrence: None)
  Receive Date: 20060918
  Receipt Date: 20060918
  Transmission Date: 20061208
  Serious: Yes (Hospitalization)
  Sender: FDA-Public Use
  Company Number: None

PATIENT
  Age: 45 Year
  Sex: Female
  Weight: 75.7507 kg

DRUGS (2)
  1. LAMICTAL [Suspect]
     Indication: BIPOLAR DISORDER
     Dosage: 2          ONCE A DAY   PO
     Route: 048
     Dates: start: 20060724, end: 20060829
  2. LAMICTAL [Suspect]
     Dosage: 1    ONCE A DAY  PO
     Route: 048

REACTIONS (1)
  - BLOOD PRESSURE INCREASED [None]
